APPROVED DRUG PRODUCT: PENICILLIN G POTASSIUM IN PLASTIC CONTAINER
Active Ingredient: PENICILLIN G POTASSIUM
Strength: 40,000 UNITS/ML
Dosage Form/Route: INJECTABLE;INJECTION
Application: N050638 | Product #002
Applicant: BAXTER HEALTHCARE CORP
Approved: Jun 25, 1990 | RLD: Yes | RS: Yes | Type: RX